FAERS Safety Report 6640344-6 (Version None)
Quarter: 2010Q1

REPORT INFORMATION
  Report Type: 
  Country: None (occurrence: None)
  Receive Date: 20100303
  Receipt Date: 20091021
  Transmission Date: 20100710
  Serious: Yes (Other)
  Sender: FDA-Public Use
  Company Number: 293059

PATIENT
  Age: 66 Year
  Sex: Female
  Weight: 104.8 kg

DRUGS (3)
  1. NOVOLIN R [Suspect]
     Indication: INSULIN-REQUIRING TYPE 2 DIABETES MELLITUS
     Dosage: 24 IU, QAM, SUBCUTANEOUS; SEE IMAGE
     Route: 058
     Dates: start: 20090801
  2. NOVOLIN R [Suspect]
     Indication: INSULIN-REQUIRING TYPE 2 DIABETES MELLITUS
     Dosage: 24 IU, QAM, SUBCUTANEOUS; SEE IMAGE
     Route: 058
     Dates: start: 20090801
  3. NOVOLIN N [Suspect]
     Indication: INSULIN-REQUIRING TYPE 2 DIABETES MELLITUS
     Dosage: 46 IU, QD, SUBCUTANEOUS
     Route: 058
     Dates: start: 20090801

REACTIONS (2)
  - HYPOGLYCAEMIC UNCONSCIOUSNESS [None]
  - WRONG DRUG ADMINISTERED [None]
